FAERS Safety Report 17389904 (Version 3)
Quarter: 2022Q2

REPORT INFORMATION
  Report Type: Spontaneous
  Country: RU (occurrence: RU)
  Receive Date: 20200207
  Receipt Date: 20220512
  Transmission Date: 20220721
  Serious: Yes (Death, Life-Threatening)
  Sender: FDA-Public Use
  Company Number: None

PATIENT
  Age: 62 Year
  Sex: Male

DRUGS (1)
  1. AZARGA [Suspect]
     Active Substance: BRINZOLAMIDE\TIMOLOL MALEATE
     Indication: Glaucoma
     Dosage: 2 GTT
     Route: 057
     Dates: start: 20190801, end: 20190801

REACTIONS (1)
  - Bronchospasm [Fatal]

NARRATIVE: CASE EVENT DATE: 20190801
